FAERS Safety Report 10047546 (Version 1)
Quarter: 2014Q1

REPORT INFORMATION
  Report Type: Spontaneous
  Country: BR (occurrence: BR)
  Receive Date: 20140331
  Receipt Date: 20140331
  Transmission Date: 20141002
  Serious: Yes (Life-Threatening, Other)
  Sender: FDA-Public Use
  Company Number: BR-JNJFOC-20140311643

PATIENT
  Age: 40 Year
  Sex: Female

DRUGS (3)
  1. EVRA [Suspect]
     Indication: CONTRACEPTION
     Route: 062
     Dates: start: 2008, end: 20131218
  2. FLUOXETINE [Concomitant]
     Indication: PRODUCT USED FOR UNKNOWN INDICATION
     Route: 065
     Dates: end: 20131218
  3. EUPRESSIN [Concomitant]
     Indication: BLOOD PRESSURE INCREASED
     Route: 065
     Dates: start: 2008

REACTIONS (6)
  - High risk pregnancy [Not Recovered/Not Resolved]
  - Pregnancy with contraceptive patch [Not Recovered/Not Resolved]
  - Exposure during pregnancy [Not Recovered/Not Resolved]
  - Hypertension [Not Recovered/Not Resolved]
  - Drug prescribing error [Unknown]
  - Constipation [Unknown]
